FAERS Safety Report 7234434-7 (Version None)
Quarter: 2011Q1

REPORT INFORMATION
  Report Type: 
  Country: None (occurrence: None)
  Receive Date: 20110119
  Receipt Date: 20110105
  Transmission Date: 20110831
  Serious: Yes (Other)
  Sender: FDA-Public Use
  Company Number: CA-GENENTECH-304980

PATIENT
  Sex: Female
  Weight: 71.7 kg

DRUGS (3)
  1. XOLAIR [Suspect]
     Dosage: 300 MG, 1/MONTH
     Route: 058
     Dates: start: 20091230
  2. XOLAIR [Suspect]
     Indication: ASTHMA
     Dosage: 300 MG, 1/MONTH
     Route: 058
     Dates: start: 20070209
  3. XOLAIR [Suspect]
     Dosage: 300 MG, 1/MONTH
     Route: 058
     Dates: start: 20100127

REACTIONS (5)
  - MOUTH BREATHING [None]
  - NASOPHARYNGITIS [None]
  - WHEEZING [None]
  - SINUS CONGESTION [None]
  - SINUSITIS [None]
